FAERS Safety Report 4917673-7 (Version None)
Quarter: 2006Q1

REPORT INFORMATION
  Report Type: 
  Country: None (occurrence: None)
  Receive Date: 20060221
  Receipt Date: 20060208
  Transmission Date: 20060701
  Serious: Yes (Hospitalization, Congenital Anomaly)
  Sender: FDA-Public Use
  Company Number: PHRM2006FR00772

PATIENT
  Age: 4 Day
  Sex: Female
  Weight: 2.43 kg

DRUGS (5)
  1. TEGRETOL [Suspect]
     Route: 064
     Dates: end: 20050910
  2. PARLODEL [Concomitant]
     Route: 064
  3. ANAFRANIL [Suspect]
     Dosage: UNK, UNK
     Route: 064
     Dates: start: 20050910
  4. EFFEXOR [Suspect]
     Dosage: UNK, UNK
     Route: 064
     Dates: start: 20050910
  5. TERCIAN [Suspect]
     Dosage: UNK, UNK
     Route: 064
     Dates: start: 20050910

REACTIONS (10)
  - AGITATION NEONATAL [None]
  - COARCTATION OF THE AORTA [None]
  - CYANOSIS NEONATAL [None]
  - DRUG EXPOSURE DURING PREGNANCY [None]
  - DRUG WITHDRAWAL SYNDROME NEONATAL [None]
  - FEVER NEONATAL [None]
  - HYPERTONIA NEONATAL [None]
  - NEONATAL TACHYPNOEA [None]
  - PULMONARY HYPERTENSION [None]
  - SMALL FOR DATES BABY [None]
